FAERS Safety Report 5461011-0 (Version None)
Quarter: 2007Q3

REPORT INFORMATION
  Report Type: 
  Country: None (occurrence: None)
  Receive Date: 20070822
  Receipt Date: 20061216
  Transmission Date: 20080115
  Serious: Yes (Other)
  Sender: FDA-Public Use
  Company Number: 2006143708

PATIENT
  Sex: Female

DRUGS (1)
  1. NORVASC [Suspect]

REACTIONS (3)
  - MEMORY IMPAIRMENT [None]
  - OEDEMA PERIPHERAL [None]
  - SKIN DISCOLOURATION [None]
